FAERS Safety Report 7808752-5 (Version None)
Quarter: 2011Q4

REPORT INFORMATION
  Report Type: 
  Country: None (occurrence: None)
  Receive Date: 20111007
  Receipt Date: 20110927
  Transmission Date: 20120403
  Serious: Yes (Other)
  Sender: FDA-Public Use
  Company Number: GB-ACCORD-010816

PATIENT
  Age: 32 Year
  Sex: Male

DRUGS (4)
  1. ETOPOSIDE [Suspect]
     Indication: TESTICULAR MALIGNANT TERATOMA STAGE III
     Dosage: 120.00-MG/M2 / INTRAVENOUS (NOT OTHERWISE SPECIFIED)
     Route: 042
     Dates: start: 20110101
  2. CARBOPLATIN [Suspect]
     Indication: TESTICULAR MALIGNANT TERATOMA STAGE III
     Dates: start: 20110101
  3. ETOPOSIDE [Suspect]
     Indication: TESTICULAR MALIGNANT TERATOMA STAGE III
     Dosage: 240.00-MG/M2 / ORAL
     Route: 048
     Dates: end: 20110101
  4. LITHIUM CARBONATE [Suspect]
     Indication: PRODUCT USED FOR UNKNOWN INDICATION

REACTIONS (2)
  - RENAL FAILURE ACUTE [None]
  - OFF LABEL USE [None]
